FAERS Safety Report 5782100-7 (Version None)
Quarter: 2008Q2

REPORT INFORMATION
  Report Type: 
  Country: None (occurrence: None)
  Receive Date: 20080623
  Receipt Date: 20080616
  Transmission Date: 20081010
  Serious: Yes (Death, Hospitalization)
  Sender: FDA-Public Use
  Company Number: TH-AVENTIS-200815696GDDC

PATIENT
  Age: 67 Year
  Sex: Male

DRUGS (1)
  1. DOCETAXEL [Suspect]
     Route: 042
     Dates: start: 20080523, end: 20080523

REACTIONS (2)
  - DIARRHOEA [None]
  - RENAL FAILURE ACUTE [None]
